FAERS Safety Report 25599675 (Version 1)
Quarter: 2025Q3

REPORT INFORMATION
  Report Type: Spontaneous
  Country: CN (occurrence: CN)
  Receive Date: 20250724
  Receipt Date: 20250724
  Transmission Date: 20251021
  Serious: Yes (Life-Threatening)
  Sender: ASTELLAS
  Company Number: CN-GILEAD-2025-0721643

PATIENT
  Age: 40 Year
  Sex: Male
  Weight: 64.5 kg

DRUGS (1)
  1. AMPHOTERICIN B [Suspect]
     Active Substance: AMPHOTERICIN B
     Indication: Aspergillus infection
     Dosage: 50 MG, QD ( 50MG + 100ML 5% GLUCOSE INJECTION WAS SLOWLY DRIPPED AT A DRIP RATE OF 15 DROPS/MIN)
     Route: 042
     Dates: start: 20250714, end: 20250714

REACTIONS (1)
  - Infusion related reaction [Recovering/Resolving]

NARRATIVE: CASE EVENT DATE: 20250714
